FAERS Safety Report 8314944-1 (Version None)
Quarter: 2012Q2

REPORT INFORMATION
  Report Type: 
  Country: None (occurrence: None)
  Receive Date: 20120426
  Receipt Date: 20120417
  Transmission Date: 20120825
  Serious: Yes (Hospitalization)
  Sender: FDA-Public Use
  Company Number: JP-MERCK-1203USA03085

PATIENT
  Age: 82 Year
  Sex: Male

DRUGS (8)
  1. DIOVAN [Concomitant]
     Route: 065
     Dates: start: 20061222
  2. JANUVIA [Suspect]
     Indication: TYPE 2 DIABETES MELLITUS
     Route: 048
     Dates: start: 20120116
  3. LANTUS [Concomitant]
     Route: 065
     Dates: end: 20120115
  4. LANTUS [Concomitant]
     Route: 065
     Dates: start: 20120116, end: 20120212
  5. AMARYL [Concomitant]
     Route: 065
     Dates: start: 20120213
  6. CARVEDILOL [Concomitant]
     Route: 065
     Dates: start: 20090727
  7. METFORMIN HCL [Concomitant]
     Route: 065
     Dates: start: 20120116
  8. MIGLITOL [Concomitant]
     Route: 065
     Dates: start: 20120116

REACTIONS (1)
  - INGUINAL HERNIA [None]
